FAERS Safety Report 8318505-X (Version None)
Quarter: 2012Q2

REPORT INFORMATION
  Report Type: 
  Country: None (occurrence: None)
  Receive Date: 20120427
  Receipt Date: 20120424
  Transmission Date: 20120825
  Serious: Yes (Death)
  Sender: FDA-Public Use
  Company Number: US-GLAXOSMITHKLINE-A0968057A

PATIENT
  Age: 76 Year
  Sex: Female
  Weight: 106.8 kg

DRUGS (4)
  1. CYMBALTA [Concomitant]
  2. WELLBUTRIN [Suspect]
     Indication: MENTAL DISORDER
     Dosage: 75MG TWICE PER DAY
     Route: 048
  3. ZYVOX [Suspect]
     Indication: STAPHYLOCOCCAL INFECTION
     Dosage: 600MG TWICE PER DAY
     Route: 048
     Dates: start: 20110718, end: 20110721
  4. CONCURRENT MEDICATIONS [Concomitant]

REACTIONS (1)
  - DEATH [None]
